FAERS Safety Report 26103202 (Version 1)
Quarter: 2025Q4

REPORT INFORMATION
  Report Type: Spontaneous
  Country: US (occurrence: US)
  Receive Date: 20251129
  Receipt Date: 20251129
  Transmission Date: 20260118
  Serious: No
  Sender: IBSA INSTITUT BIOCHIMIQUE
  Company Number: US-IBSA PHARMA INC.-2025IBS000211

PATIENT

DRUGS (2)
  1. TIROSINT [Suspect]
     Active Substance: LEVOTHYROXINE SODIUM
     Indication: Autoimmune thyroiditis
     Dosage: 75 MICROGRAM, QD
  2. TIROSINT [Suspect]
     Active Substance: LEVOTHYROXINE SODIUM
     Dosage: 75 MICROGRAM, EVERY OTHER SUNDAY

REACTIONS (8)
  - Erythema [Unknown]
  - Acne [Unknown]
  - Discomfort [None]
  - Malaise [Unknown]
  - Pruritus [Unknown]
  - Abdominal pain upper [Unknown]
  - Urticaria [Unknown]
  - Fatigue [Unknown]
